FAERS Safety Report 26045301 (Version 1)
Quarter: 2025Q4

REPORT INFORMATION
  Report Type: Spontaneous
  Country: US (occurrence: US)
  Receive Date: 20251114
  Receipt Date: 20251114
  Transmission Date: 20260118
  Serious: No
  Sender: TAKEDA
  Company Number: US-TAKEDA-2025TUS100101

PATIENT
  Age: 42 Year
  Sex: Female
  Weight: 143 kg

DRUGS (2)
  1. TRINTELLIX [Suspect]
     Active Substance: VORTIOXETINE HYDROBROMIDE
     Indication: Bipolar disorder
     Dosage: 10 MILLIGRAM, QD
  2. TRINTELLIX [Suspect]
     Active Substance: VORTIOXETINE HYDROBROMIDE
     Dosage: 20 MILLIGRAM, QD

REACTIONS (3)
  - No adverse event [Unknown]
  - Overdose [Unknown]
  - Off label use [Unknown]
